FAERS Safety Report 7410799-8 (Version None)
Quarter: 2011Q2

REPORT INFORMATION
  Report Type: 
  Country: None (occurrence: None)
  Receive Date: 20110413
  Receipt Date: 20110411
  Transmission Date: 20111010
  Serious: No
  Sender: FDA-Public Use
  Company Number: US-PFIZER INC-2011079618

PATIENT
  Sex: Male
  Weight: 72.562 kg

DRUGS (4)
  1. ZOLOFT [Suspect]
     Indication: DEPRESSION
     Dosage: UNK
  2. PAXIL [Suspect]
     Indication: DEPRESSION
     Dosage: UNK
  3. CYMBALTA [Suspect]
     Indication: DEPRESSION
  4. WELLBUTRIN [Suspect]
     Indication: DEPRESSION
     Dosage: UNK

REACTIONS (4)
  - EAR PAIN [None]
  - TINNITUS [None]
  - HYPERACUSIS [None]
  - PHOTOPSIA [None]
